FAERS Safety Report 9996599 (Version 2)
Quarter: 2014Q1

REPORT INFORMATION
  Report Type: Spontaneous
  Country: ES (occurrence: ES)
  Receive Date: 20140311
  Receipt Date: 20140321
  Transmission Date: 20141002
  Serious: Yes (Other)
  Sender: FDA-Public Use
  Company Number: ES-VERTEX PHARMACEUTICALS INC-2014-001210

PATIENT
  Age: 43 Year
  Sex: Male

DRUGS (3)
  1. INCIVO [Suspect]
     Indication: HEPATITIS C
     Dosage: 750 MG, BID
     Route: 065
     Dates: start: 20140113
  2. PEGASYS [Suspect]
     Indication: HEPATITIS C
     Dosage: 180 ?G, QW
     Dates: start: 20140113
  3. RIBAVIRIN [Suspect]
     Indication: HEPATITIS C
     Dosage: 1 G, QD
     Dates: start: 20140113

REACTIONS (6)
  - Oedema peripheral [Recovering/Resolving]
  - Anaemia [Unknown]
  - Rash erythematous [Recovering/Resolving]
  - Oedema peripheral [Unknown]
  - Pruritus [Unknown]
  - Dry skin [Unknown]
